FAERS Safety Report 17510815 (Version 2)
Quarter: 2020Q1

REPORT INFORMATION
  Report Type: Spontaneous
  Country: US (occurrence: US)
  Receive Date: 20200306
  Receipt Date: 20200309
  Transmission Date: 20200409
  Serious: Yes (Death)
  Sender: FDA-Public Use
  Company Number: US-LEXICON PHARMACEUTICALS, INC-20-1606-00182

PATIENT
  Sex: Female

DRUGS (16)
  1. KLOR-CON [Concomitant]
     Active Substance: POTASSIUM CHLORIDE
  2. VITAMIN D [Concomitant]
     Active Substance: VITAMIN D NOS
  3. BRILINTA [Concomitant]
     Active Substance: TICAGRELOR
  4. RANEXA [Concomitant]
     Active Substance: RANOLAZINE
  5. SANDOSTATIN LAR DEPOT [Concomitant]
     Active Substance: OCTREOTIDE ACETATE
  6. VENLAFAXINE HCL [Concomitant]
     Active Substance: VENLAFAXINE HYDROCHLORIDE
  7. POTASSIUM CHLORIDE ER [Concomitant]
     Active Substance: POTASSIUM CHLORIDE
  8. NITROGLYCERIN TRANSDERMAL [Concomitant]
  9. FLUTICASONE PROPIONATE. [Concomitant]
     Active Substance: FLUTICASONE PROPIONATE
  10. XERMELO [Suspect]
     Active Substance: TELOTRISTAT ETHYL
     Indication: CARCINOID SYNDROME
     Dates: start: 20180926
  11. ASPIRIN. [Concomitant]
     Active Substance: ASPIRIN
  12. LEVAQUIN [Concomitant]
     Active Substance: LEVOFLOXACIN
  13. THIAMINE HCL [Concomitant]
     Active Substance: THIAMINE HYDROCHLORIDE
  14. XANAX [Concomitant]
     Active Substance: ALPRAZOLAM
  15. MAGNESIUM [Concomitant]
     Active Substance: MAGNESIUM
  16. FEXOFENADINE HCL [Concomitant]
     Active Substance: FEXOFENADINE HYDROCHLORIDE

REACTIONS (1)
  - Death [Fatal]
